FAERS Safety Report 4404544-8 (Version None)
Quarter: 2004Q3

REPORT INFORMATION
  Report Type: 
  Country: None (occurrence: None)
  Receive Date: 20040721
  Receipt Date: 20040721
  Transmission Date: 20050211
  Serious: Yes (Hospitalization)
  Sender: FDA-Public Use
  Company Number: None

PATIENT
  Age: 41 Year
  Sex: Male
  Weight: 94.3482 kg

DRUGS (3)
  1. GAMMAGARD S/D [Suspect]
     Indication: GUILLAIN-BARRE SYNDROME
     Dosage: 40 GRAMS DAILY X 5 INTRAVENOUS
     Route: 042
     Dates: start: 20040711, end: 20040715
  2. DIPHENHYDRAMINE [Concomitant]
  3. ACETAMINOPHEN [Concomitant]

REACTIONS (3)
  - OLIGURIA [None]
  - PAIN IN EXTREMITY [None]
  - PULMONARY EMBOLISM [None]
